FAERS Safety Report 4337138-3 (Version None)
Quarter: 2004Q2

REPORT INFORMATION
  Report Type: 
  Country: None (occurrence: None)
  Receive Date: 20040408
  Receipt Date: 20040330
  Transmission Date: 20050107
  Serious: Yes (Hospitalization)
  Sender: FDA-Public Use
  Company Number: 2004-114352-NL

PATIENT
  Sex: Female

DRUGS (8)
  1. MIRTAZAPINE [Suspect]
     Indication: INSOMNIA
     Dosage: 45 MG ORAL
     Route: 048
     Dates: end: 20040204
  2. SPIRIVA [Concomitant]
  3. LACTULOSE [Concomitant]
  4. ASPIRIN [Concomitant]
  5. CETYLCYSTEINE [Concomitant]
  6. FORMOTEROL FUMARATE [Concomitant]
  7. TRIOBE [Concomitant]
  8. CANDESARTAN CILEXETIL [Concomitant]

REACTIONS (3)
  - BACK PAIN [None]
  - HYPONATRAEMIA [None]
  - RALES [None]
